FAERS Safety Report 10055126 (Version 1)
Quarter: 2014Q2

REPORT INFORMATION
  Report Type: Spontaneous
  Country: US (occurrence: US)
  Receive Date: 20140402
  Receipt Date: 20140402
  Transmission Date: 20141212
  Serious: No
  Sender: FDA-Public Use
  Company Number: US-SA-2014SA018156

PATIENT
  Age: 47 Year
  Sex: Female
  Weight: 52.16 kg

DRUGS (4)
  1. AUBAGIO [Suspect]
     Indication: MULTIPLE SCLEROSIS
     Route: 065
     Dates: start: 201307
  2. CITALOPRAM HYDROBROMIDE [Concomitant]
     Route: 065
  3. VITAMIN D [Concomitant]
     Dosage: STRENGTH: 5000 UNIT
     Route: 065
  4. TYLENOL [Concomitant]
     Indication: SLEEP DISORDER

REACTIONS (11)
  - Contusion [Recovered/Resolved]
  - Contusion [Recovered/Resolved]
  - Menstrual disorder [Unknown]
  - Decreased appetite [Unknown]
  - Ear congestion [Unknown]
  - Cognitive disorder [Unknown]
  - Fatigue [Unknown]
  - Weight decreased [Unknown]
  - Alopecia [Unknown]
  - Headache [Unknown]
  - Paraesthesia [Unknown]
